FAERS Safety Report 6118533-9 (Version None)
Quarter: 2009Q1

REPORT INFORMATION
  Report Type: 
  Country: None (occurrence: None)
  Receive Date: 20090314
  Receipt Date: 20090221
  Transmission Date: 20090719
  Serious: No
  Sender: FDA-Public Use
  Company Number: US-ABBOTT-09P-163-0558613-00

PATIENT
  Sex: Male
  Weight: 108.96 kg

DRUGS (1)
  1. HUMIRA [Suspect]
     Indication: PSORIASIS
     Dates: start: 20080401

REACTIONS (5)
  - ACNE [None]
  - CHEST DISCOMFORT [None]
  - ERYTHEMA [None]
  - LOCAL SWELLING [None]
  - RASH [None]
